FAERS Safety Report 20879424 (Version 3)
Quarter: 2022Q2

REPORT INFORMATION
  Report Type: Spontaneous
  Country: US (occurrence: US)
  Receive Date: 20220526
  Receipt Date: 20220610
  Transmission Date: 20220721
  Serious: No
  Sender: FDA-Public Use
  Company Number: US-PFIZER INC-202200755403

PATIENT
  Age: 88 Year
  Sex: Female

DRUGS (1)
  1. METRONIDAZOLE [Suspect]
     Active Substance: METRONIDAZOLE
     Dosage: UNK
     Route: 048

REACTIONS (5)
  - Hepatic enzyme increased [Unknown]
  - Blood bilirubin increased [Unknown]
  - Chromaturia [Unknown]
  - Feeling abnormal [Unknown]
  - Drug hypersensitivity [Unknown]
